FAERS Safety Report 20649419 (Version 2)
Quarter: 2022Q2

REPORT INFORMATION
  Report Type: Spontaneous
  Country: RO (occurrence: RO)
  Receive Date: 20220329
  Receipt Date: 20220419
  Transmission Date: 20220721
  Serious: Yes (Hospitalization, Other)
  Sender: FDA-Public Use
  Company Number: RO-BAUSCH-BL-2022-007620

PATIENT
  Age: 66 Year
  Sex: Female

DRUGS (1)
  1. RIFAXIMIN [Suspect]
     Active Substance: RIFAXIMIN
     Indication: Diverticulitis
     Dosage: 200 MG TABLETS; 2 TABLETS AT 8 HOURS
     Route: 065
     Dates: start: 20220217, end: 20220222

REACTIONS (5)
  - Cerebrovascular accident [Recovering/Resolving]
  - Syncope [Recovered/Resolved]
  - Malaise [Not Recovered/Not Resolved]
  - Confusional state [Not Recovered/Not Resolved]
  - Headache [Recovered/Resolved]
